FAERS Safety Report 5042696-X (Version None)
Quarter: 2006Q2

REPORT INFORMATION
  Report Type: 
  Country: None (occurrence: None)
  Receive Date: 20060601
  Receipt Date: 20060222
  Transmission Date: 20061013
  Serious: No
  Sender: FDA-Public Use
  Company Number: 2006PV009289

PATIENT
  Age: 64 Year
  Sex: Male
  Weight: 118.8424 kg

DRUGS (4)
  1. BYETTA [Suspect]
     Indication: DIABETES MELLITUS NON-INSULIN-DEPENDENT
     Dosage: 5 MCG;BID;SC
     Route: 058
     Dates: start: 20060120
  2. LANTUS [Concomitant]
  3. NOVOLIN N [Concomitant]
  4. HUMALOG [Concomitant]

REACTIONS (6)
  - DECREASED APPETITE [None]
  - DRUG EFFECT DECREASED [None]
  - DRUG INEFFECTIVE FOR UNAPPROVED INDICATION [None]
  - HYPOGLYCAEMIA [None]
  - NAUSEA [None]
  - WEIGHT DECREASED [None]
